FAERS Safety Report 4595297-1 (Version None)
Quarter: 2005Q1

REPORT INFORMATION
  Report Type: 
  Country: None (occurrence: None)
  Receive Date: 20050223
  Receipt Date: 20050210
  Transmission Date: 20050727
  Serious: Yes (Other)
  Sender: FDA-Public Use
  Company Number: 2005029748

PATIENT
  Age: 72 Year
  Sex: Male
  Weight: 111.1313 kg

DRUGS (6)
  1. BEXTRA [Suspect]
     Indication: ARTHRITIS
     Dosage: 10 MG, ORAL
     Route: 048
     Dates: start: 20020101, end: 20040101
  2. BEXTRA [Suspect]
     Indication: NECK PAIN
     Dosage: 10 MG, ORAL
     Route: 048
     Dates: start: 20020101, end: 20040101
  3. ISOSORBIDE (ISOSORBIDE) [Concomitant]
  4. METFORMIN HCL [Concomitant]
  5. GLIPIZIDE [Concomitant]
  6. FUROSEMIDE [Concomitant]

REACTIONS (1)
  - MYOCARDIAL INFARCTION [None]
